FAERS Safety Report 14254962 (Version 8)
Quarter: 2018Q3

REPORT INFORMATION
  Report Type: Report from Study
  Country: JP (occurrence: JP)
  Receive Date: 20171206
  Receipt Date: 20180910
  Transmission Date: 20181010
  Serious: Yes (Death, Life-Threatening, Hospitalization, Disabling)
  Sender: FDA-Public Use
  Company Number: JP-B.I. PHARMACEUTICALS,INC./RIDGEFIELD-2017-NB-007047

PATIENT
  Age: 92 Year
  Sex: Female
  Weight: 40 kg

DRUGS (4)
  1. PRAZAXA [Suspect]
     Active Substance: DABIGATRAN ETEXILATE MESYLATE
     Indication: ATRIAL FIBRILLATION
     Route: 048
     Dates: start: 20171112, end: 20171203
  2. TAKECAB [Concomitant]
     Active Substance: VONOPRAZAN FUMURATE
     Indication: PRODUCT USED FOR UNKNOWN INDICATION
     Route: 065
     Dates: end: 20171203
  3. MERISLON [Concomitant]
     Active Substance: BETAHISTINE MESILATE
     Indication: PRODUCT USED FOR UNKNOWN INDICATION
     Route: 065
     Dates: end: 20171203
  4. MAINTATE [Concomitant]
     Active Substance: BISOPROLOL FUMARATE
     Indication: PRODUCT USED FOR UNKNOWN INDICATION
     Route: 065
     Dates: end: 20171211

REACTIONS (7)
  - Lower gastrointestinal haemorrhage [Recovering/Resolving]
  - Diarrhoea [Recovered/Resolved]
  - Hemiplegia [Recovered/Resolved with Sequelae]
  - Depressed level of consciousness [Recovered/Resolved with Sequelae]
  - Disuse syndrome [Fatal]
  - Shock [Recovered/Resolved]
  - Haemorrhage [Recovered/Resolved]

NARRATIVE: CASE EVENT DATE: 20171204
